FAERS Safety Report 8795641 (Version 2)
Quarter: 2015Q2

REPORT INFORMATION
  Report Type: Report from Study
  Country: US (occurrence: US)
  Receive Date: 20120917
  Receipt Date: 20150623
  Transmission Date: 20150821
  Serious: Yes (Death)
  Sender: FDA-Public Use
  Company Number: US-ROCHE-1128774

PATIENT
  Sex: Male
  Weight: 86 kg

DRUGS (5)
  1. LEUCOVORIN [Concomitant]
     Active Substance: LEUCOVORIN
     Route: 065
  2. FLURACIL [Concomitant]
     Active Substance: FLUOROURACIL
     Route: 065
  3. AVASTIN [Suspect]
     Active Substance: BEVACIZUMAB
     Indication: OESOPHAGEAL CARCINOMA
     Route: 042
     Dates: start: 20041208
  4. AVASTIN [Suspect]
     Active Substance: BEVACIZUMAB
     Indication: HAEMATOLOGICAL MALIGNANCY
  5. IRINOTECAN [Concomitant]
     Active Substance: IRINOTECAN
     Route: 065

REACTIONS (2)
  - Off label use [Unknown]
  - Death [Fatal]
